FAERS Safety Report 10243920 (Version 1)
Quarter: 2014Q1

REPORT INFORMATION
  Report Type: Spontaneous
  Country: US (occurrence: None)
  Receive Date: 20140306
  Receipt Date: 20140306
  Transmission Date: 20141002
  Serious: Yes (Other)
  Sender: FDA-Public Use
  Company Number: 163-21880-13053393

PATIENT
  Age: 56 Year
  Sex: Male
  Weight: 97.98 kg

DRUGS (15)
  1. REVLIMID (LENALIDOMIDE) (CAPSULES) [Suspect]
     Indication: CHRONIC LYMPHOCYTIC LEUKAEMIA
     Dosage: 10 MG, 7 IN 7 D, PO
     Route: 048
     Dates: start: 201304
  2. JANUVIA (STIAGLIPTIN PHOSPHATE) [Concomitant]
  3. ZOLPIDEM (ZOLPIDEM) [Concomitant]
  4. DIOVAN (VALSARTAN) [Concomitant]
  5. SIMVASTATIN [Concomitant]
  6. ONDANSETRON [Concomitant]
  7. GLIMEPIRIDE [Concomitant]
  8. ACYCLOVIR (ACICLOVIR) (ACICLOVIR) [Concomitant]
  9. OMEPRAZOLE [Concomitant]
  10. VITAMIN C (ASCORBIC ACID) [Concomitant]
  11. VITAMIN B12 (CYANOCOBALAMIN) [Concomitant]
  12. BACTRIM DS (BACTRIM) [Concomitant]
  13. VITAMIN B (ERGOCACIFEROL) [Concomitant]
  14. CURCUMIN [Concomitant]
  15. METFORMIN [Concomitant]

REACTIONS (2)
  - Jaw disorder [None]
  - Pain in jaw [None]
